FAERS Safety Report 22259139 (Version 1)
Quarter: 2023Q2

REPORT INFORMATION
  Report Type: Spontaneous
  Country: US (occurrence: None)
  Receive Date: 20230425
  Receipt Date: 20230425
  Transmission Date: 20230721
  Serious: Yes (Death)
  Sender: FDA-Public Use
  Company Number: None

PATIENT
  Age: 52 Year
  Sex: Male
  Weight: 56.5 kg

DRUGS (1)
  1. TECOVIRIMAT [Suspect]
     Active Substance: TECOVIRIMAT

REACTIONS (2)
  - Acquired immunodeficiency syndrome [None]
  - Monkeypox [None]

NARRATIVE: CASE EVENT DATE: 20230423
